FAERS Safety Report 4835519-2 (Version None)
Quarter: 2005Q4

REPORT INFORMATION
  Report Type: 
  Country: None (occurrence: None)
  Receive Date: 20051121
  Receipt Date: 20051116
  Transmission Date: 20060501
  Serious: Yes (Other)
  Sender: FDA-Public Use
  Company Number: 006084

PATIENT
  Sex: Female

DRUGS (6)
  1. MEDROXYPROGESTERONE [Suspect]
     Dosage: ORAL
     Route: 048
  2. ESTRADIOL [Suspect]
     Dosage: ORAL
     Route: 048
  3. PROVERA [Suspect]
     Dosage: ORAL
     Route: 048
  4. PREMARIN [Suspect]
     Dosage: ORAL
     Route: 048
  5. PREMPHASE (PREMARIN;CYCRIN 14/14) [Suspect]
     Dosage: ORAL
     Route: 048
  6. PREMPRO [Suspect]
     Dosage: ORAL
     Route: 048

REACTIONS (1)
  - BREAST CANCER [None]
